FAERS Safety Report 4785681-5 (Version None)
Quarter: 2005Q3

REPORT INFORMATION
  Report Type: 
  Country: None (occurrence: None)
  Receive Date: 20050929
  Receipt Date: 20050922
  Transmission Date: 20060218
  Serious: Yes (Death)
  Sender: FDA-Public Use
  Company Number: 2005-US-00132

PATIENT
  Age: 82 Year
  Sex: Male

DRUGS (1)
  1. CLOZAPINE [Suspect]
     Indication: SCHIZOPHRENIA
     Dosage: 100 MG, QD, ORAL
     Route: 048
     Dates: start: 19990201, end: 20050801

REACTIONS (1)
  - CEREBROVASCULAR ACCIDENT [None]
